FAERS Safety Report 5205002-3 (Version None)
Quarter: 2007Q1

REPORT INFORMATION
  Report Type: 
  Country: None (occurrence: None)
  Receive Date: 20070110
  Receipt Date: 20060927
  Transmission Date: 20070707
  Serious: No
  Sender: FDA-Public Use
  Company Number: US-BRISTOL-MYERS SQUIBB COMPANY-13523550

PATIENT
  Age: 8 Year
  Sex: Female

DRUGS (1)
  1. ABILIFY [Suspect]
     Indication: BIPOLAR DISORDER
     Dosage: DOSE INCREASED TO 15MG DAILY AFTER 6 DAYS
     Dates: end: 20060924

REACTIONS (7)
  - DROOLING [None]
  - DYSARTHRIA [None]
  - DYSKINESIA [None]
  - DYSSTASIA [None]
  - HALLUCINATION [None]
  - STARING [None]
  - TREMOR [None]
